FAERS Safety Report 20594215 (Version 1)
Quarter: 2022Q1

REPORT INFORMATION
  Report Type: Other
  Country: None (occurrence: US)
  Receive Date: 20220315
  Receipt Date: 20220315
  Transmission Date: 20220424
  Serious: Yes (Life-Threatening, Hospitalization, Other)
  Sender: FDA-Public Use
  Company Number: US-Innogenix, LLC-2126782

PATIENT
  Age: 26 Year
  Sex: Male

DRUGS (3)
  1. PROPRANOLOL HYDROCHLORIDE [Suspect]
     Active Substance: PROPRANOLOL HYDROCHLORIDE
     Indication: Product used for unknown indication
     Route: 048
  2. BUPROPION [Suspect]
     Active Substance: BUPROPION
     Route: 048
  3. AMLODIPINE [Suspect]
     Active Substance: AMLODIPINE BESYLATE
     Route: 048

REACTIONS (6)
  - Encephalopathy [Recovered/Resolved]
  - Cardiogenic shock [Recovering/Resolving]
  - Vasoplegia syndrome [Recovering/Resolving]
  - Seizure [Recovered/Resolved]
  - Toxicity to various agents [Recovering/Resolving]
  - Intentional overdose [Recovering/Resolving]
